FAERS Safety Report 8937050 (Version 2)
Quarter: 2012Q4

REPORT INFORMATION
  Report Type: 
  Country: US (occurrence: US)
  Receive Date: 20121130
  Receipt Date: 20121226
  Transmission Date: 20130627
  Serious: No
  Sender: FDA-Public Use
  Company Number: US-B.I. PHARMACEUTICALS,INC./RIDGEFIELD-2012-BP-27476BP

PATIENT
  Age: 69 Year
  Sex: Male

DRUGS (4)
  1. COMBIVENT [Suspect]
     Indication: BRONCHITIS CHRONIC
     Route: 055
     Dates: start: 20121107, end: 20121107
  2. COMBIVENT [Suspect]
     Indication: CHRONIC OBSTRUCTIVE PULMONARY DISEASE
  3. ASPIRIN [Concomitant]
     Dosage: 81 mg
     Route: 048
  4. TOPROL [Concomitant]
     Dosage: 25 mg
     Route: 048

REACTIONS (1)
  - Atrial flutter [Recovered/Resolved]
